FAERS Safety Report 21517945 (Version 1)
Quarter: 2022Q4

REPORT INFORMATION
  Report Type: Spontaneous
  Country: CA (occurrence: CA)
  Receive Date: 20221028
  Receipt Date: 20221028
  Transmission Date: 20230112
  Serious: Yes (Hospitalization, Other)
  Sender: FDA-Public Use
  Company Number: CA-BRISTOL-MYERS SQUIBB COMPANY-2022-127299

PATIENT
  Sex: Female

DRUGS (120)
  1. ORENCIA [Suspect]
     Active Substance: ABATACEPT
     Indication: Rheumatoid arthritis
     Route: 065
  2. ACETAMINOPHEN [Concomitant]
     Active Substance: ACETAMINOPHEN
     Indication: Product used for unknown indication
  3. ACTEMRA [Concomitant]
     Active Substance: TOCILIZUMAB
     Indication: Rheumatoid arthritis
     Route: 058
  4. ACTEMRA [Concomitant]
     Active Substance: TOCILIZUMAB
     Route: 058
  5. ACTEMRA [Concomitant]
     Active Substance: TOCILIZUMAB
     Route: 058
  6. ACTEMRA [Concomitant]
     Active Substance: TOCILIZUMAB
     Route: 058
  7. ALENDRONATE SODIUM [Concomitant]
     Active Substance: ALENDRONATE SODIUM
     Indication: Rheumatoid arthritis
     Route: 065
  8. PREDNISONE [Concomitant]
     Active Substance: PREDNISONE
     Indication: Product used for unknown indication
     Route: 065
  9. PREDNISONE [Concomitant]
     Active Substance: PREDNISONE
     Route: 048
  10. ARAVA [Concomitant]
     Active Substance: LEFLUNOMIDE
     Indication: Product used for unknown indication
     Route: 048
  11. ARAVA [Concomitant]
     Active Substance: LEFLUNOMIDE
     Route: 048
  12. ASACOL [Concomitant]
     Active Substance: MESALAMINE
     Indication: Crohn^s disease
     Route: 065
  13. AZATHIOPRINE SODIUM [Concomitant]
     Active Substance: AZATHIOPRINE SODIUM
     Indication: Rheumatoid arthritis
     Route: 065
  14. CAFFEINE [Concomitant]
     Active Substance: CAFFEINE
     Indication: Product used for unknown indication
     Route: 065
  15. CALCIUM CARBONATE [Concomitant]
     Active Substance: CALCIUM CARBONATE
     Indication: Product used for unknown indication
     Route: 065
  16. CETIRIZINE HYDROCHLORIDE [Concomitant]
     Active Substance: CETIRIZINE HYDROCHLORIDE
     Indication: Product used for unknown indication
     Route: 065
  17. CETIRIZINE HYDROCHLORIDE [Concomitant]
     Active Substance: CETIRIZINE HYDROCHLORIDE
     Route: 065
  18. CETIRIZINE HYDROCHLORIDE [Concomitant]
     Active Substance: CETIRIZINE HYDROCHLORIDE
     Route: 065
  19. CETIRIZINE HYDROCHLORIDE [Concomitant]
     Active Substance: CETIRIZINE HYDROCHLORIDE
     Route: 065
  20. CETIRIZINE HYDROCHLORIDE [Concomitant]
     Active Substance: CETIRIZINE HYDROCHLORIDE
     Route: 065
  21. CIMZIA [Concomitant]
     Active Substance: CERTOLIZUMAB PEGOL
     Indication: Rheumatoid arthritis
     Route: 058
  22. CIMZIA [Concomitant]
     Active Substance: CERTOLIZUMAB PEGOL
     Route: 058
  23. CODEINE [Concomitant]
     Active Substance: CODEINE
     Indication: Product used for unknown indication
     Route: 065
  24. DICLOFENAC [Concomitant]
     Active Substance: DICLOFENAC
  25. DICLOFENAC POTASSIUM [Concomitant]
     Active Substance: DICLOFENAC POTASSIUM
     Indication: Product used for unknown indication
     Route: 065
  26. DICLOFENAC SODIUM [Concomitant]
     Active Substance: DICLOFENAC SODIUM
     Indication: Product used for unknown indication
     Route: 065
  27. ENBREL [Concomitant]
     Active Substance: ETANERCEPT
     Indication: Rheumatoid arthritis
     Route: 058
  28. ENBREL [Concomitant]
     Active Substance: ETANERCEPT
     Route: 058
  29. ERELZI [Concomitant]
     Active Substance: ETANERCEPT-SZZS
     Indication: Rheumatoid arthritis
     Route: 065
  30. ERELZI [Concomitant]
     Active Substance: ETANERCEPT-SZZS
     Route: 065
  31. ERELZI [Concomitant]
     Active Substance: ETANERCEPT-SZZS
     Route: 065
  32. FOLIC ACID [Concomitant]
     Active Substance: FOLIC ACID
     Indication: Rheumatoid arthritis
     Route: 065
  33. FOLIC ACID [Concomitant]
     Active Substance: FOLIC ACID
     Route: 065
  34. FOLIC ACID [Concomitant]
     Active Substance: FOLIC ACID
     Route: 065
  35. FOLIC ACID [Concomitant]
     Active Substance: FOLIC ACID
     Route: 065
  36. FOLIC ACID [Concomitant]
     Active Substance: FOLIC ACID
     Route: 065
  37. FOLIC ACID [Concomitant]
     Active Substance: FOLIC ACID
     Route: 065
  38. FOLIC ACID [Concomitant]
     Active Substance: FOLIC ACID
     Route: 065
  39. FOLIC ACID [Concomitant]
     Active Substance: FOLIC ACID
     Route: 065
  40. FOLIC ACID [Concomitant]
     Active Substance: FOLIC ACID
     Route: 065
  41. FOLIC ACID [Concomitant]
     Active Substance: FOLIC ACID
     Route: 065
  42. FOLIC ACID [Concomitant]
     Active Substance: FOLIC ACID
     Route: 065
  43. FOLIC ACID [Concomitant]
     Active Substance: FOLIC ACID
     Route: 065
  44. FOSAMAX [Concomitant]
     Active Substance: ALENDRONATE SODIUM
     Indication: Rheumatoid arthritis
     Route: 016
  45. HUMIRA [Concomitant]
     Active Substance: ADALIMUMAB
     Indication: Rheumatoid arthritis
     Route: 065
  46. HUMIRA [Concomitant]
     Active Substance: ADALIMUMAB
     Route: 058
  47. HUMIRA [Concomitant]
     Active Substance: ADALIMUMAB
     Dosage: SOLUTION SUBCUTANEOUS
     Route: 058
  48. HYDROCORTISONE ACETATE [Concomitant]
     Active Substance: HYDROCORTISONE ACETATE
     Indication: Rheumatoid arthritis
     Route: 048
  49. HYDROXYCHLOROQUINE [Concomitant]
     Active Substance: HYDROXYCHLOROQUINE
     Indication: Product used for unknown indication
     Route: 048
  50. HYDROXYCHLOROQUINE [Concomitant]
     Active Substance: HYDROXYCHLOROQUINE
     Route: 048
  51. HYDROXYCHLOROQUINE SULFATE [Concomitant]
     Active Substance: HYDROXYCHLOROQUINE SULFATE
     Indication: Rheumatoid arthritis
     Route: 065
  52. HYDROXYCHLOROQUINE SULFATE [Concomitant]
     Active Substance: HYDROXYCHLOROQUINE SULFATE
     Route: 065
  53. HYDROXYCHLOROQUINE SULFATE [Concomitant]
     Active Substance: HYDROXYCHLOROQUINE SULFATE
     Route: 065
  54. HYDROXYCHLOROQUINE SULFATE [Concomitant]
     Active Substance: HYDROXYCHLOROQUINE SULFATE
     Route: 065
  55. HYDROXYCHLOROQUINE SULFATE [Concomitant]
     Active Substance: HYDROXYCHLOROQUINE SULFATE
     Route: 065
  56. INFLIXIMAB [Concomitant]
     Active Substance: INFLIXIMAB
     Indication: Product used for unknown indication
     Route: 042
  57. KEVZARA [Concomitant]
     Active Substance: SARILUMAB
     Indication: Rheumatoid arthritis
     Route: 065
  58. METHOTREXATE [Concomitant]
     Active Substance: METHOTREXATE
     Indication: Rheumatoid arthritis
     Route: 048
  59. METHOTREXATE [Concomitant]
     Active Substance: METHOTREXATE
     Route: 048
  60. METHOTREXATE [Concomitant]
     Active Substance: METHOTREXATE
     Route: 065
  61. METHOTREXATE [Concomitant]
     Active Substance: METHOTREXATE
     Route: 048
  62. METHOTREXATE [Concomitant]
     Active Substance: METHOTREXATE
     Route: 048
  63. METHOTREXATE [Concomitant]
     Active Substance: METHOTREXATE
     Route: 048
  64. METHOTREXATE [Concomitant]
     Active Substance: METHOTREXATE
     Route: 016
  65. METHOTREXATE [Concomitant]
     Active Substance: METHOTREXATE
     Route: 065
  66. METHOTREXATE [Concomitant]
     Active Substance: METHOTREXATE
     Route: 065
  67. METHOTREXATE [Concomitant]
     Active Substance: METHOTREXATE
     Route: 048
  68. METHOTREXATE [Concomitant]
     Active Substance: METHOTREXATE
     Route: 065
  69. METHOTREXATE [Concomitant]
     Active Substance: METHOTREXATE
     Route: 058
  70. METHOTREXATE [Concomitant]
     Active Substance: METHOTREXATE
     Route: 048
  71. MINOCYCLINE HYDROCHLORIDE [Concomitant]
     Active Substance: MINOCYCLINE HYDROCHLORIDE
     Indication: Product used for unknown indication
     Route: 065
  72. PANTOPRAZOLE [Concomitant]
     Active Substance: PANTOPRAZOLE
     Indication: Dyspepsia
     Route: 065
  73. PHTHALYLSULFATHIAZOLE [Concomitant]
     Active Substance: PHTHALYLSULFATHIAZOLE
     Indication: Product used for unknown indication
     Route: 065
  74. PHTHALYLSULFATHIAZOLE [Concomitant]
     Active Substance: PHTHALYLSULFATHIAZOLE
     Indication: Rheumatoid arthritis
  75. HYDROXYCHLOROQUINE DIPHOSPHATE [Concomitant]
     Active Substance: HYDROXYCHLOROQUINE DIPHOSPHATE
     Indication: Rheumatoid arthritis
     Route: 065
  76. HYDROXYCHLOROQUINE DIPHOSPHATE [Concomitant]
     Active Substance: HYDROXYCHLOROQUINE DIPHOSPHATE
     Route: 065
  77. prednisone/rituximab [Concomitant]
     Indication: Product used for unknown indication
     Route: 048
  78. prednisone/rituximab [Concomitant]
     Route: 048
  79. prednisone/rituximab [Concomitant]
     Route: 048
  80. prednisone/rituximab [Concomitant]
     Route: 048
  81. REMICADE [Concomitant]
     Active Substance: INFLIXIMAB
     Indication: Rheumatoid arthritis
     Route: 042
  82. REMICADE [Concomitant]
     Active Substance: INFLIXIMAB
     Route: 042
  83. REMICADE [Concomitant]
     Active Substance: INFLIXIMAB
     Route: 042
  84. REMICADE [Concomitant]
     Active Substance: INFLIXIMAB
     Route: 042
  85. REMICADE [Concomitant]
     Active Substance: INFLIXIMAB
     Route: 042
  86. RITUXIMAB [Concomitant]
     Active Substance: RITUXIMAB
     Indication: Product used for unknown indication
     Route: 065
  87. SIMPONI [Concomitant]
     Active Substance: GOLIMUMAB
     Indication: Rheumatoid arthritis
     Dosage: SOLUTION SUBCUTANEOUS
     Route: 065
  88. SOLU-MEDROL [Concomitant]
     Active Substance: METHYLPREDNISOLONE SODIUM SUCCINATE
     Indication: Product used for unknown indication
     Route: 048
  89. STELARA [Concomitant]
     Active Substance: USTEKINUMAB
     Indication: Rheumatoid arthritis
     Dosage: SOLUTION SUBCUTANEOUS
     Route: 065
  90. STELARA [Concomitant]
     Active Substance: USTEKINUMAB
     Route: 065
  91. SULFASALAZINE [Concomitant]
     Active Substance: SULFASALAZINE
     Indication: Product used for unknown indication
     Route: 058
  92. SULFASALAZINE [Concomitant]
     Active Substance: SULFASALAZINE
     Route: 058
  93. SULFASALAZINE [Concomitant]
     Active Substance: SULFASALAZINE
     Route: 058
  94. SULFASALAZINE [Concomitant]
     Active Substance: SULFASALAZINE
     Route: 058
  95. SULFASALAZINE [Concomitant]
     Active Substance: SULFASALAZINE
     Route: 058
  96. SULFASALAZINE [Concomitant]
     Active Substance: SULFASALAZINE
     Route: 058
  97. SULFASALAZINE [Concomitant]
     Active Substance: SULFASALAZINE
     Route: 058
  98. TOCILIZUMAB [Concomitant]
     Active Substance: TOCILIZUMAB
     Indication: Rheumatoid arthritis
     Route: 058
  99. TOCILIZUMAB [Concomitant]
     Active Substance: TOCILIZUMAB
     Route: 016
  100. TOCILIZUMAB [Concomitant]
     Active Substance: TOCILIZUMAB
     Route: 016
  101. USTEKINUMAB [Concomitant]
     Active Substance: USTEKINUMAB
     Indication: Rheumatoid arthritis
     Route: 058
  102. USTEKINUMAB [Concomitant]
     Active Substance: USTEKINUMAB
     Route: 058
  103. XELJANZ [Concomitant]
     Active Substance: TOFACITINIB CITRATE
     Indication: Rheumatoid arthritis
     Route: 065
  104. XELJANZ [Concomitant]
     Active Substance: TOFACITINIB CITRATE
     Route: 065
  105. ACETAMINOPHEN;TRAMADOL HYDROCHLORIDE;VITAMIN B1 NOS;VITAMIN B12 NOS [Concomitant]
     Indication: Product used for unknown indication
     Route: 065
  106. ALENDRONIC ACID;CALCIUM CITRATE TETRAHYDRATE;vitamin D3 [Concomitant]
     Indication: Product used for unknown indication
     Route: 065
  107. AMMONIUM CHLORIDE;DIPHENHYDRAMINE HYDROCHLORIDE;SODIUM CITRATE ACID [Concomitant]
     Indication: Product used for unknown indication
     Route: 065
  108. ASCORBIC ACID;BIOFLAVONOIDS NOS;CALCIUM ASCORBATE;HESPERIDIN;RIBOFLAVI [Concomitant]
     Indication: Rheumatoid arthritis
     Route: 065
  109. CALCIUM GLUBIONATE;COLECALCIFEROL;VITAMIN B12 NOS [Concomitant]
     Indication: Product used for unknown indication
     Route: 065
  110. CHLORHEXIDINE;SODIUM FLUORIDE;ZINC [Concomitant]
     Indication: Product used for unknown indication
     Route: 065
  111. DIPHENHYDRAMINE HYDROCHLORIDE;HYDROCORTISONE ACETATE;NEOMYCIN SULFATE; [Concomitant]
     Indication: Product used for unknown indication
     Route: 065
  112. DESMIN [DESOGESTREL;ETHINYLESTRADIOL] [Concomitant]
     Indication: Product used for unknown indication
     Route: 065
  113. DESMIN [DESOGESTREL;ETHINYLESTRADIOL] [Concomitant]
     Indication: Rheumatoid arthritis
     Route: 061
  114. DESOXIMETASONE;FRAMYCETIN;GRAMICIDIN [Concomitant]
     Indication: Rheumatoid arthritis
     Route: 061
  115. FLUSAN [FLUMETASONE PIVALATE;SALICYLIC ACID] [Concomitant]
     Indication: Product used for unknown indication
     Route: 065
  116. DIPHENHYDRAMINE HYDROCHLORIDE;HYDROCORTISONE ACETATE;NEOMYCIN SULFATE [Concomitant]
     Indication: Product used for unknown indication
     Route: 065
  117. COSENTYX [Concomitant]
     Active Substance: SECUKINUMAB
     Indication: Product used for unknown indication
     Route: 065
  118. LORAZEPAM/TEMAZEPAM [Concomitant]
     Indication: Product used for unknown indication
     Route: 065
  119. ZESTRIL [Concomitant]
     Active Substance: LISINOPRIL
     Indication: Product used for unknown indication
     Route: 065
  120. AMINOSALICYLATE CALCIUM [Concomitant]
     Active Substance: AMINOSALICYLATE CALCIUM
     Indication: Product used for unknown indication
     Route: 065

REACTIONS (29)
  - Abdominal discomfort [Unknown]
  - Adverse drug reaction [Unknown]
  - Adverse event [Unknown]
  - Alopecia [Unknown]
  - Arthralgia [Unknown]
  - Blood cholesterol increased [Unknown]
  - C-reactive protein increased [Unknown]
  - Condition aggravated [Unknown]
  - Decreased appetite [Unknown]
  - Dizziness [Unknown]
  - Drug ineffective [Unknown]
  - Drug intolerance [Unknown]
  - Fatigue [Unknown]
  - Fibromyalgia [Unknown]
  - General physical health deterioration [Unknown]
  - Headache [Unknown]
  - Helicobacter infection [Unknown]
  - Hepatic enzyme increased [Unknown]
  - Hypercholesterolaemia [Unknown]
  - Hypertension [Unknown]
  - Hypoaesthesia [Unknown]
  - Infusion related reaction [Unknown]
  - Intentional product use issue [Unknown]
  - Mobility decreased [Unknown]
  - Osteoarthritis [Unknown]
  - Swelling [Unknown]
  - Type 2 diabetes mellitus [Unknown]
  - Vomiting [Unknown]
  - Hospitalisation [Unknown]
